FAERS Safety Report 6030188-0 (Version None)
Quarter: 2009Q1

REPORT INFORMATION
  Report Type: 
  Country: None (occurrence: None)
  Receive Date: 20090107
  Receipt Date: 20080814
  Transmission Date: 20090719
  Serious: No
  Sender: FDA-Public Use
  Company Number: US-BAYER-200813422BCC

PATIENT
  Age: 64 Year
  Sex: Female
  Weight: 82 kg

DRUGS (9)
  1. ALEVE [Suspect]
     Indication: HEADACHE
     Dosage: TOTAL DAILY DOSE: 440 MG  UNIT DOSE: 220 MG
     Dates: start: 20030101
  2. SYNTHROID [Concomitant]
  3. VITAMIN D [Concomitant]
  4. TOPROL-XL [Concomitant]
  5. CALCIUM LACTATE [Concomitant]
  6. HYDROCHLOROTHIAZIDE [Concomitant]
  7. VITAMIN E [Concomitant]
  8. SINGULAIR [Concomitant]
  9. PREVACID [Concomitant]

REACTIONS (1)
  - HEADACHE [None]
